FAERS Safety Report 8362492-5 (Version None)
Quarter: 2012Q2

REPORT INFORMATION
  Report Type: 
  Country: None (occurrence: None)
  Receive Date: 20120514
  Receipt Date: 20120514
  Transmission Date: 20120825
  Serious: Yes (Disabling)
  Sender: FDA-Public Use
  Company Number: None

PATIENT
  Sex: Male
  Weight: 83.9154 kg

DRUGS (1)
  1. REMICADE NOT SURE CENTACOR [Suspect]
     Indication: COLITIS ULCERATIVE
     Dosage: 1 INFUSION EVERY 8 WEEKS IV
     Route: 042
     Dates: start: 20070511, end: 20120103

REACTIONS (5)
  - HYPOAESTHESIA [None]
  - DEAFNESS UNILATERAL [None]
  - VERTIGO [None]
  - PARAESTHESIA [None]
  - DIPLOPIA [None]
